FAERS Safety Report 8792446 (Version 1)
Quarter: 2012Q4

REPORT INFORMATION
  Report Type: 
  Country: PL (occurrence: PL)
  Receive Date: 20120918
  Receipt Date: 20120918
  Transmission Date: 20130627
  Serious: Yes (Death, Other)
  Sender: FDA-Public Use
  Company Number: PHHY2012PL080838

PATIENT
  Age: 63 Year
  Sex: Female
  Weight: 68 kg

DRUGS (9)
  1. KETONAL [Suspect]
     Indication: SCHIZOPHRENIA, PARANOID TYPE
  2. KLOZAPOL [Suspect]
  3. FLUANXOL [Suspect]
  4. MIRTAZAPINE [Suspect]
  5. PAROXETIN [Suspect]
  6. DEPAKINE [Suspect]
  7. SERTRALINE [Suspect]
  8. RISPOLEPT [Suspect]
  9. AUGMENTIN [Suspect]

REACTIONS (4)
  - Pneumonia bacterial [Fatal]
  - Respiratory failure [Fatal]
  - Toxic epidermal necrolysis [Unknown]
  - Infection in an immunocompromised host [None]
